FAERS Safety Report 26211266 (Version 2)
Quarter: 2025Q4

REPORT INFORMATION
  Report Type: Spontaneous
  Country: US (occurrence: US)
  Receive Date: 20251230
  Receipt Date: 20251231
  Transmission Date: 20260117
  Serious: No
  Sender: ASTELLAS
  Company Number: US-ASTELLAS-2025-AER-072265

PATIENT
  Age: 72 Year
  Sex: Male

DRUGS (15)
  1. XTANDI [Suspect]
     Active Substance: ENZALUTAMIDE
     Indication: Prostate cancer
     Dosage: FREQUENCY: IN THE MORNING
     Route: 048
  2. TALZENNA [Suspect]
     Active Substance: TALAZOPARIB TOSYLATE
     Indication: Prostate cancer
     Dosage: 30-DAY SUPPLY, SOFT GELATIN CAPSULES SOFT GELATIN CAPSULES, IN THE MORNING?NUMBER OF REFILLS: 12
     Route: 048
     Dates: start: 20251124
  3. LIPITOR [Concomitant]
     Active Substance: ATORVASTATIN CALCIUM
     Indication: Product used for unknown indication
     Dosage: 1 TABLET BY MOUTH ONCE DAILY, DISP: 100 TABLET, RFL: 2
     Route: 048
  4. LOTENSIN [Concomitant]
     Active Substance: BENAZEPRIL HYDROCHLORIDE
     Indication: Product used for unknown indication
     Dosage: TAKE 1 TABLET BY MOUTH ONCE DAILY, DISP: 100 TABLET, RFL: 2
     Route: 048
  5. PERIACTIN [Concomitant]
     Active Substance: CYPROHEPTADINE HYDROCHLORIDE
     Indication: Appetite disorder
     Dosage: TAKE 1 TABLET BY MOUTH THREE TIMES DAILY FOR APPETITE
     Route: 048
  6. LEXAPRO [Concomitant]
     Active Substance: ESCITALOPRAM OXALATE
     Indication: Product used for unknown indication
     Dosage: TAKE 1 TABLET BY MOUTH IN THE MORNING., DISP: 120 TABLET, RF: 3
     Route: 048
  7. PEPCID [Concomitant]
     Active Substance: FAMOTIDINE
     Indication: Product used for unknown indication
     Dosage: TAKE 1 TABLET BY MOUTH AT BEDTIME THE NIGHT BEFORE SURGERY AND 1 TABLET IN THE MORNING OF SURGERY WI
     Route: 048
  8. HYDRODIURIL [Concomitant]
     Active Substance: HYDROCHLOROTHIAZIDE
     Indication: Product used for unknown indication
     Dosage: TAKE 1 TABLET BY MOUTH ONCE DAILY, DISP: 100 TABLET, RF: 2
     Route: 048
  9. PREVACID [Concomitant]
     Active Substance: LANSOPRAZOLE
     Indication: Product used for unknown indication
     Dosage: TAKE 1 CAPSULE BY MOUTH ONCE DAILY, DISP: 100 CAPSULE, RF: 2
     Route: 048
  10. MOBIC [Concomitant]
     Active Substance: MELOXICAM
     Indication: Pain
     Dosage: TAKE 1 TABLET BY MOUTH DAILY AS NEEDED FOR PAIN (TAKE WITH FOOD, USE SPARINGLY)., DISP: 30 TABLET, R
     Route: 048
  11. ZOFRAN [Concomitant]
     Active Substance: ONDANSETRON HYDROCHLORIDE
     Indication: Nausea
     Dosage: TAKE 1 TABLET BY MOUTH EVERY 8 (EIGHT) HOURS AS NEEDED FOR NAUSEA, DISP: 20 TABLET, RF: 3
     Route: 048
  12. COMPAZINE [Concomitant]
     Active Substance: PROCHLORPERAZINE MALEATE
     Indication: Product used for unknown indication
     Dosage: TAKE 1 TABLET BY MOUTH EVERY 6 (SIX) HOURS AS NEEDED, DISP: 30 TABLET, RF: 2
     Route: 048
  13. ZOLOFT [Concomitant]
     Active Substance: SERTRALINE HYDROCHLORIDE
     Indication: Product used for unknown indication
     Dosage: TAKE 1 TABLET BY MOUTH IN THE MORNING
     Route: 048
  14. VIAGRA [Concomitant]
     Active Substance: SILDENAFIL CITRATE
     Indication: Erectile dysfunction
     Dosage: TAKE 1 TABLET BY MOUTH AS NEEDED FOR ERECTILE DYSFUNCTION, DISP: 30 CAPSULE, RF: 3
     Route: 048
  15. ACETAMINOPHEN\HYDROCODONE [Concomitant]
     Active Substance: ACETAMINOPHEN\HYDROCODONE
     Indication: Pain
     Dosage: 7.5-325 MG/15 ML SOLUTION, TAKE 15 MLS BY MOUTH EVERY 6 (SIX) HOURS AS NEEDED FOR PAIN., DISP: 473 M
     Route: 048

REACTIONS (2)
  - Radiation dysphagia [Unknown]
  - Radiation oesophagitis [Unknown]
